FAERS Safety Report 10256009 (Version 1)
Quarter: 2014Q2

REPORT INFORMATION
  Report Type: Spontaneous
  Country: DE (occurrence: DE)
  Receive Date: 20140624
  Receipt Date: 20140624
  Transmission Date: 20141212
  Serious: Yes (Other)
  Sender: FDA-Public Use
  Company Number: DE-GLAXOSMITHKLINE-D0084289A

PATIENT
  Sex: Female

DRUGS (1)
  1. RELVAR ELLIPTA [Suspect]
     Indication: ASTHMA
     Route: 055

REACTIONS (6)
  - Neuroborreliosis [Unknown]
  - Arrhythmia [Unknown]
  - Tachycardia [Unknown]
  - Dizziness [Unknown]
  - Dizziness [Unknown]
  - Myalgia [Unknown]
